FAERS Safety Report 16903619 (Version 2)
Quarter: 2025Q3

REPORT INFORMATION
  Report Type: Spontaneous
  Country: US (occurrence: US)
  Receive Date: 20191010
  Receipt Date: 20250915
  Transmission Date: 20251021
  Serious: Yes (Death, Life-Threatening, Other)
  Sender: SANOFI AVENTIS
  Company Number: US-SA-2019SA277179

PATIENT
  Age: 59 Year
  Sex: Male

DRUGS (8)
  1. CAPECITABINE [Suspect]
     Active Substance: CAPECITABINE
     Indication: Oesophageal adenocarcinoma
  2. CISPLATIN [Suspect]
     Active Substance: CISPLATIN
     Indication: Oesophageal adenocarcinoma
  3. DEXAMETHASONE [Suspect]
     Active Substance: DEXAMETHASONE
     Indication: Oesophageal adenocarcinoma
  4. DOCETAXEL [Suspect]
     Active Substance: DOCETAXEL
     Indication: Oesophageal adenocarcinoma
  5. BEVACIZUMAB [Suspect]
     Active Substance: BEVACIZUMAB
     Indication: Oesophageal adenocarcinoma
  6. BEVACIZUMAB [Suspect]
     Active Substance: BEVACIZUMAB
  7. EPIRUBICIN [Suspect]
     Active Substance: EPIRUBICIN
     Indication: Oesophageal adenocarcinoma
  8. IRINOTECAN [Suspect]
     Active Substance: IRINOTECAN
     Indication: Oesophageal adenocarcinoma

REACTIONS (11)
  - Haemoptysis [Fatal]
  - Cardio-respiratory arrest [Fatal]
  - Vascular pseudoaneurysm [Unknown]
  - Idiosyncratic drug reaction [Unknown]
  - Thrombosis [Unknown]
  - Hypersensitivity [Unknown]
  - Hypoxia [Unknown]
  - Hypotension [Unknown]
  - Pharyngeal ulceration [Unknown]
  - Mucosal inflammation [Unknown]
  - Ulcer [Recovered/Resolved]
